FAERS Safety Report 9481901 (Version 1)
Quarter: 2013Q3

REPORT INFORMATION
  Report Type: Spontaneous
  Country: US (occurrence: US)
  Receive Date: 20130828
  Receipt Date: 20130828
  Transmission Date: 20140515
  Serious: Yes (Other)
  Sender: FDA-Public Use
  Company Number: US-ASTRAZENECA-2013SE64690

PATIENT
  Age: 45 Year
  Sex: Male
  Weight: 99.8 kg

DRUGS (1)
  1. OMEPRAZOLE [Suspect]
     Indication: GASTROOESOPHAGEAL REFLUX DISEASE
     Route: 048
     Dates: start: 2011

REACTIONS (4)
  - Fall [Unknown]
  - Bone marrow disorder [Unknown]
  - Forearm fracture [Unknown]
  - Drug dose omission [Unknown]
